FAERS Safety Report 7633583-9 (Version None)
Quarter: 2011Q3

REPORT INFORMATION
  Report Type: 
  Country: None (occurrence: None)
  Receive Date: 20110725
  Receipt Date: 20110705
  Transmission Date: 20111222
  Serious: Yes (Hospitalization)
  Sender: FDA-Public Use
  Company Number: US-GLAXOSMITHKLINE-A0877528A

PATIENT
  Age: 44 Year
  Sex: Male
  Weight: 129.1 kg

DRUGS (6)
  1. AVANDIA [Suspect]
     Indication: DIABETES MELLITUS
     Dosage: 4MG PER DAY
     Dates: start: 20050422, end: 20070823
  2. LISINOPRIL [Concomitant]
  3. NORVASC [Concomitant]
  4. AVANDAMET [Suspect]
     Indication: DIABETES MELLITUS
     Dates: start: 20050729
  5. DIOVAN [Concomitant]
  6. HYZAAR [Concomitant]

REACTIONS (2)
  - ACUTE MYOCARDIAL INFARCTION [None]
  - MYOCARDIAL ISCHAEMIA [None]
